FAERS Safety Report 9085429 (Version 1)
Quarter: 2013Q1

REPORT INFORMATION
  Report Type: Report from Study
  Country: US (occurrence: US)
  Receive Date: 20130131
  Receipt Date: 20130131
  Transmission Date: 20140127
  Serious: No
  Sender: FDA-Public Use
  Company Number: US-ABBOTT-12P-163-1002744-00

PATIENT
  Age: 64 Year
  Sex: Female

DRUGS (12)
  1. HUMIRA [Suspect]
     Indication: RHEUMATOID ARTHRITIS
     Dates: start: 200603
  2. LOSARTAN POTASSIUM AND HYDROCHLOROTHIAZIDE [Concomitant]
     Indication: PRODUCT USED FOR UNKNOWN INDICATION
     Dosage: 100-25 MG
  3. CLONIDINE [Concomitant]
     Indication: PRODUCT USED FOR UNKNOWN INDICATION
     Dosage: CHANGED EVERY WEEK
  4. CLONIDINE HYDROCHLORIDE [Concomitant]
     Indication: PRODUCT USED FOR UNKNOWN INDICATION
     Dosage: 0.01 MG
  5. GABAPENTIN [Concomitant]
     Indication: PRODUCT USED FOR UNKNOWN INDICATION
  6. ALENDRONATE SODIUM [Concomitant]
     Indication: PRODUCT USED FOR UNKNOWN INDICATION
  7. HYDROCODONE [Concomitant]
     Indication: PRODUCT USED FOR UNKNOWN INDICATION
     Dosage: 10-325 MG, CURRENTLY TAKING 4 TABS A DAY
  8. HYDROCODONE [Concomitant]
     Dosage: 10-325 MG; WAS 8 PILLS A DAY
  9. MULTIVITAMIN [Concomitant]
     Indication: PRODUCT USED FOR UNKNOWN INDICATION
     Dosage: EVERY DAY
  10. BABY ASPIRIN [Concomitant]
     Indication: PRODUCT USED FOR UNKNOWN INDICATION
     Dosage: 81 MG EVERY DAY
  11. VITAMIN D [Concomitant]
     Indication: PRODUCT USED FOR UNKNOWN INDICATION
     Dosage: 1000 UNITS, 4 TABS DAILY
  12. DHEA [Concomitant]
     Dosage: 50 MG DAILY

REACTIONS (9)
  - Rash [Not Recovered/Not Resolved]
  - Fungal infection [Unknown]
  - Vulvovaginal pruritus [Unknown]
  - Wound secretion [Unknown]
  - Pruritus [Unknown]
  - Tinea infection [Unknown]
  - Blood calcium increased [Unknown]
  - Rash [Unknown]
  - Arthropod bite [Unknown]
